FAERS Safety Report 5504862-6 (Version None)
Quarter: 2007Q4

REPORT INFORMATION
  Report Type: 
  Country: None (occurrence: None)
  Receive Date: 20071102
  Receipt Date: 20071025
  Transmission Date: 20080405
  Serious: Yes (Hospitalization)
  Sender: FDA-Public Use
  Company Number: PHBS2007JP17896

PATIENT

DRUGS (5)
  1. DIOVAN [Suspect]
     Route: 048
  2. TEGRETOL [Suspect]
     Route: 048
  3. LOXOPROFEN SODIUM [Suspect]
  4. DEPAS [Concomitant]
  5. MEXITIL [Concomitant]

REACTIONS (4)
  - DRUG RASH WITH EOSINOPHILIA AND SYSTEMIC SYMPTOMS [None]
  - ERYTHEMA [None]
  - SKIN EROSION [None]
  - STEVENS-JOHNSON SYNDROME [None]
